FAERS Safety Report 5130389-X (Version None)
Quarter: 2006Q4

REPORT INFORMATION
  Report Type: 
  Country: None (occurrence: None)
  Receive Date: 20061019
  Receipt Date: 20061011
  Transmission Date: 20070319
  Serious: Yes (Death)
  Sender: FDA-Public Use
  Company Number: JP-AVENTIS-200613231JP

PATIENT

DRUGS (3)
  1. TAXOTERE [Suspect]
     Indication: NON-SMALL CELL LUNG CANCER
     Dosage: DOSE: 60MG/M2/3WEEKS
     Route: 041
  2. VINORELBINE [Suspect]
     Indication: NON-SMALL CELL LUNG CANCER
     Dosage: DOSE: 25MG/M2 TWICE IN 3 WEEKS
     Route: 041
  3. GEMCITABINE [Suspect]
     Indication: NON-SMALL CELL LUNG CANCER
     Dosage: DOSE: 1000MG/M2 TWICE IN 3 WEEKS
     Route: 041

REACTIONS (5)
  - LUNG DISORDER [None]
  - NEUROPATHY PERIPHERAL [None]
  - NEUTROPENIA [None]
  - PNEUMONITIS [None]
  - PULMONARY TOXICITY [None]
